FAERS Safety Report 22053207 (Version 1)
Quarter: 2023Q1

REPORT INFORMATION
  Report Type: Report from Study
  Country: TH (occurrence: TH)
  Receive Date: 20230302
  Receipt Date: 20230302
  Transmission Date: 20230418
  Serious: Yes (Other)
  Sender: FDA-Public Use
  Company Number: TH-002147023-NVSC2023TH019728

PATIENT
  Sex: Female
  Weight: 71 kg

DRUGS (4)
  1. KISQALI [Suspect]
     Active Substance: RIBOCICLIB
     Indication: Breast cancer metastatic
     Dosage: 3 DOSAGE FORM, QD (TOTAL 600 MG), AFTER BREAKFAST ? TAKING 3 WEEKS (21 DAYS), SKIPPING 1 WEEK (7 DAY
     Route: 048
  2. WARFARIN [Concomitant]
     Active Substance: WARFARIN
     Indication: Product used for unknown indication
     Dosage: UNK (2MG AND 3MG) 1 TAB ORAL OD HS EVEN DAY
     Route: 065
  3. WARFARIN [Concomitant]
     Active Substance: WARFARIN
     Dosage: 2 MG, QD, (1 TABLET AT BEDTIME ON EVEN CALENDAR DATES)
     Route: 048
  4. WARFARIN [Concomitant]
     Active Substance: WARFARIN
     Dosage: 3 MG, QD, (1 TABLET AT BEDTIME ON ODD CALENDAR DATES)
     Route: 048

REACTIONS (9)
  - Breast cancer female [Unknown]
  - Breast cancer recurrent [Unknown]
  - Deep vein thrombosis [Unknown]
  - Metastases to lung [Unknown]
  - Metastasis [Unknown]
  - Hypertension [Unknown]
  - Oropharyngeal pain [Unknown]
  - Arthralgia [Unknown]
  - Endocrine disorder [Unknown]
